FAERS Safety Report 22160589 (Version 1)
Quarter: 2023Q1

REPORT INFORMATION
  Report Type: Spontaneous
  Country: US (occurrence: US)
  Receive Date: 20230331
  Receipt Date: 20230331
  Transmission Date: 20230417
  Serious: Yes (Death, Other)
  Sender: FDA-Public Use
  Company Number: US-BTG-201900067

PATIENT
  Sex: Male

DRUGS (1)
  1. VORAXAZE [Suspect]
     Active Substance: GLUCARPIDASE
     Indication: Product used for unknown indication
     Dosage: 4 VIALS OF GLUCARPIDASE
     Route: 065

REACTIONS (4)
  - Death [Fatal]
  - Renal failure [Unknown]
  - Inappropriate schedule of product administration [Unknown]
  - Off label use [Unknown]
